FAERS Safety Report 25588384 (Version 6)
Quarter: 2025Q3

REPORT INFORMATION
  Report Type: Spontaneous
  Country: US (occurrence: US)
  Receive Date: 20250722
  Receipt Date: 20250917
  Transmission Date: 20251020
  Serious: Yes (Hospitalization, Other)
  Sender: ACCORD
  Company Number: US-Accord-494569

PATIENT
  Age: 77 Year
  Sex: Male
  Weight: 91.74 kg

DRUGS (7)
  1. CARBOPLATIN [Suspect]
     Active Substance: CARBOPLATIN
     Indication: Small cell lung cancer extensive stage
     Dosage: Q3W, IV DRIP
     Route: 042
     Dates: start: 20250512, end: 20250512
  2. ETOPOSIDE [Suspect]
     Active Substance: ETOPOSIDE
     Indication: Small cell lung cancer extensive stage
     Dosage: Q3W, FROM DAY 1 TO DAY 3 OF EACH CYCLE; IV DRIP
     Route: 042
     Dates: start: 20250512, end: 20250514
  3. ATORVASTATIN [Concomitant]
     Active Substance: ATORVASTATIN
     Indication: Hyperlipidaemia
     Route: 048
  4. CARBOPLATIN [Suspect]
     Active Substance: CARBOPLATIN
     Indication: Small cell lung cancer extensive stage
     Dosage: Q3W, IV DRIP
     Route: 042
     Dates: start: 20250619, end: 20250619
  5. CARBOPLATIN [Suspect]
     Active Substance: CARBOPLATIN
     Indication: Small cell lung cancer extensive stage
     Dosage: Q3W, IV DRIP
     Route: 042
     Dates: start: 20250715, end: 20250715
  6. ETOPOSIDE [Suspect]
     Active Substance: ETOPOSIDE
     Indication: Small cell lung cancer extensive stage
     Dosage: Q3W, FROM DAY 1 TO DAY 3 OF EACH CYCLE; IV DRIP
     Route: 042
     Dates: start: 20250619, end: 20250621
  7. ETOPOSIDE [Suspect]
     Active Substance: ETOPOSIDE
     Indication: Small cell lung cancer extensive stage
     Dosage: Q3W, FROM DAY 1 TO DAY 3 OF EACH CYCLE; IV DRIP
     Route: 042
     Dates: start: 20250715, end: 20250717

REACTIONS (3)
  - Sepsis [Recovered/Resolved]
  - Parainfluenzae virus infection [Unknown]
  - Febrile neutropenia [Recovered/Resolved]

NARRATIVE: CASE EVENT DATE: 20250601
